FAERS Safety Report 17630208 (Version 1)
Quarter: 2020Q2

REPORT INFORMATION
  Report Type: Spontaneous
  Country: US (occurrence: US)
  Receive Date: 20200404
  Receipt Date: 20200404
  Transmission Date: 20200713
  Serious: Yes (Other)
  Sender: FDA-Public Use
  Company Number: None

PATIENT
  Age: 58 Year
  Sex: Female
  Weight: 81 kg

DRUGS (2)
  1. OXYCODONE 10/325 [Suspect]
     Active Substance: ACETAMINOPHEN\OXYCODONE HYDROCHLORIDE
     Indication: INTERVERTEBRAL DISC DEGENERATION
     Dosage: ?          QUANTITY:150 TABLET(S);OTHER FREQUENCY:1 TAB 5? DAILY;?
     Route: 048
     Dates: end: 20200402
  2. OXYCODONE 10/325 [Suspect]
     Active Substance: ACETAMINOPHEN\OXYCODONE HYDROCHLORIDE
     Indication: OSTEOARTHRITIS
     Dosage: ?          QUANTITY:150 TABLET(S);OTHER FREQUENCY:1 TAB 5? DAILY;?
     Route: 048
     Dates: end: 20200402

REACTIONS (3)
  - Drug resistance [None]
  - Drug withdrawal syndrome [None]
  - Suspected product quality issue [None]

NARRATIVE: CASE EVENT DATE: 20200315
